FAERS Safety Report 4373694-7 (Version None)
Quarter: 2004Q1

REPORT INFORMATION
  Report Type: 
  Country: None (occurrence: None)
  Receive Date: 20040305
  Receipt Date: 20040107
  Transmission Date: 20041129
  Serious: Yes (Other)
  Sender: FDA-Public Use
  Company Number: 2004UW00299

PATIENT
  Age: 59 Year
  Sex: Female
  Weight: 59.4212 kg

DRUGS (3)
  1. CRESTOR [Suspect]
     Indication: HYPERCHOLESTEROLAEMIA
     Dosage: 10 MG QD PO
     Route: 048
  2. DIGOXIN [Concomitant]
  3. ESTRACE [Concomitant]

REACTIONS (2)
  - INFLUENZA LIKE ILLNESS [None]
  - PRODUCTIVE COUGH [None]
